FAERS Safety Report 6400212-1 (Version None)
Quarter: 2009Q4

REPORT INFORMATION
  Report Type: 
  Country: None (occurrence: None)
  Receive Date: 20091014
  Receipt Date: 20091007
  Transmission Date: 20100525
  Serious: Yes (Hospitalization, Other)
  Sender: FDA-Public Use
  Company Number: US-BAYER-200934965GPV

PATIENT
  Age: 52 Year
  Sex: Male

DRUGS (2)
  1. ASPIRIN [Suspect]
     Indication: BACK PAIN
     Route: 048
  2. ASPIRIN [Suspect]
     Dosage: 10 TO 20 ADULT STRENGTH (162-325 MG) ASPIRIN TABLETS DAILY
     Route: 048

REACTIONS (8)
  - ACID BASE BALANCE ABNORMAL [None]
  - CHEST DISCOMFORT [None]
  - DYSPNOEA [None]
  - HYPOKALAEMIA [None]
  - HYPOXIA [None]
  - NON-CARDIOGENIC PULMONARY OEDEMA [None]
  - THERAPEUTIC AGENT TOXICITY [None]
  - WHITE BLOOD CELL COUNT INCREASED [None]
